FAERS Safety Report 10202002 (Version 2)
Quarter: 2014Q4

REPORT INFORMATION
  Report Type: Spontaneous
  Country: US (occurrence: US)
  Receive Date: 20140528
  Receipt Date: 20141103
  Transmission Date: 20150528
  Serious: No
  Sender: FDA-Public Use
  Company Number: US-BRISTOL-MYERS SQUIBB COMPANY-19846682

PATIENT
  Age: 50 Year
  Sex: Female

DRUGS (8)
  1. GLUCOPHAGE [Suspect]
     Active Substance: METFORMIN HYDROCHLORIDE
     Dosage: HALF TO 1000MG 1X PER DAY
     Dates: start: 2010
  2. GLUCOPHAGE XR [Suspect]
     Active Substance: METFORMIN HYDROCHLORIDE
  3. VITAMIN B [Concomitant]
     Active Substance: VITAMIN B
  4. ZYRTEC [Concomitant]
     Active Substance: CETIRIZINE HYDROCHLORIDE
  5. NAPROXEN. [Concomitant]
     Active Substance: NAPROXEN
  6. MULTIVITAMIN [Concomitant]
     Active Substance: VITAMINS
  7. LYRICA [Concomitant]
     Active Substance: PREGABALIN
  8. TOPROL XL [Concomitant]
     Active Substance: METOPROLOL SUCCINATE

REACTIONS (2)
  - Blood glucose increased [Unknown]
  - Drug administration error [Unknown]
